FAERS Safety Report 4402759-6 (Version None)
Quarter: 2004Q3

REPORT INFORMATION
  Report Type: 
  Country: None (occurrence: None)
  Receive Date: 20040720
  Receipt Date: 20040720
  Transmission Date: 20050211
  Serious: Yes (Life-Threatening, Hospitalization)
  Sender: FDA-Public Use
  Company Number: None

PATIENT
  Age: 33 Year
  Sex: Male
  Weight: 99.3377 kg

DRUGS (1)
  1. AVASTIN [Suspect]
     Indication: COLON CANCER METASTATIC
     Dosage: 500 MG ONCE INTRAVENOUS
     Route: 042
     Dates: start: 20040715, end: 20040715

REACTIONS (1)
  - MYOCARDIAL INFARCTION [None]
